FAERS Safety Report 10275785 (Version 2)
Quarter: 2014Q3

REPORT INFORMATION
  Report Type: Spontaneous
  Country: US (occurrence: US)
  Receive Date: 20140703
  Receipt Date: 20140703
  Transmission Date: 20150326
  Serious: Yes (Other)
  Sender: FDA-Public Use
  Company Number: US-INCYTE CORPORATION-2014IN001509

PATIENT
  Sex: Male

DRUGS (8)
  1. JAKAFI [Suspect]
     Active Substance: RUXOLITINIB
     Indication: MYELOFIBROSIS
     Dosage: 15 MG, BID
     Route: 048
     Dates: start: 20140207, end: 201402
  2. SYNTHROID [Concomitant]
     Active Substance: LEVOTHYROXINE SODIUM
  3. MAGNESIUM [Concomitant]
     Active Substance: MAGNESIUM
  4. HYDREA [Concomitant]
     Active Substance: HYDROXYUREA
     Dosage: UNK
     Dates: start: 201403
  5. REMERON [Concomitant]
     Active Substance: MIRTAZAPINE
  6. PAXIL [Concomitant]
     Active Substance: PAROXETINE HYDROCHLORIDE
  7. HYDREA [Concomitant]
     Active Substance: HYDROXYUREA
     Dosage: UNK
     Dates: start: 201202
  8. ALLOPURINOL. [Concomitant]
     Active Substance: ALLOPURINOL

REACTIONS (11)
  - Hypomagnesaemia [Unknown]
  - Leukocytosis [Unknown]
  - Hypokalaemia [Unknown]
  - Night sweats [Unknown]
  - Red blood cell count decreased [Unknown]
  - Blood product transfusion dependent [Unknown]
  - Fatigue [Unknown]
  - International normalised ratio increased [Unknown]
  - Thrombocytopenia [Unknown]
  - Leukaemia [Unknown]
  - Pain [Not Recovered/Not Resolved]

NARRATIVE: CASE EVENT DATE: 2014
